FAERS Safety Report 7239168-0 (Version None)
Quarter: 2011Q1

REPORT INFORMATION
  Report Type: 
  Country: None (occurrence: None)
  Receive Date: 20110121
  Receipt Date: 20071220
  Transmission Date: 20110831
  Serious: Yes (Other)
  Sender: FDA-Public Use
  Company Number: PHHY2007JP03793

PATIENT
  Age: 21 Year
  Sex: Female

DRUGS (1)
  1. CARBAMAZEPINE [Suspect]
     Indication: EPILEPSY

REACTIONS (3)
  - CONVULSION [None]
  - SOMNOLENCE [None]
  - CORTICAL DYSPLASIA [None]
